FAERS Safety Report 23450016 (Version 1)
Quarter: 2024Q1

REPORT INFORMATION
  Report Type: Other
  Country: EG (occurrence: None)
  Receive Date: 20240129
  Receipt Date: 20240129
  Transmission Date: 20240410
  Serious: Yes (Other)
  Sender: FDA-Public Use
  Company Number: EG-ROCHE-2909188

PATIENT
  Age: 33 Year
  Sex: Male
  Weight: 110 kg

DRUGS (1)
  1. OCREVUS [Suspect]
     Active Substance: OCRELIZUMAB
     Indication: Multiple sclerosis
     Dosage: SUBSEQUENT DOSE ON 12/SEP/2020
     Route: 042
     Dates: start: 20200314, end: 20230304

REACTIONS (2)
  - Movement disorder [Recovered/Resolved]
  - Progressive multiple sclerosis [Not Recovered/Not Resolved]
